FAERS Safety Report 22210586 (Version 1)
Quarter: 2023Q2

REPORT INFORMATION
  Report Type: Spontaneous
  Country: FR (occurrence: FR)
  Receive Date: 20230414
  Receipt Date: 20230414
  Transmission Date: 20230721
  Serious: Yes (Hospitalization)
  Sender: FDA-Public Use
  Company Number: None

PATIENT
  Age: 53 Year
  Sex: Female
  Weight: 88 kg

DRUGS (2)
  1. ALBUTEROL [Concomitant]
     Active Substance: ALBUTEROL
     Indication: Asthma exercise induced
     Dosage: UNK
  2. RYBELSUS [Suspect]
     Active Substance: SEMAGLUTIDE
     Indication: Overweight
     Dosage: 1 DF
     Route: 048
     Dates: start: 20230314, end: 20230314

REACTIONS (2)
  - Subarachnoid haemorrhage [Not Recovered/Not Resolved]
  - Product use in unapproved indication [Not Recovered/Not Resolved]

NARRATIVE: CASE EVENT DATE: 20230314
